FAERS Safety Report 7608059-5 (Version None)
Quarter: 2011Q3

REPORT INFORMATION
  Report Type: 
  Country: None (occurrence: None)
  Receive Date: 20110712
  Receipt Date: 20110629
  Transmission Date: 20111222
  Serious: No
  Sender: FDA-Public Use
  Company Number: DL2011-0458

PATIENT
  Sex: Female

DRUGS (4)
  1. MIFEPRISTONE (MIFEPREX) [Suspect]
     Indication: ABORTION INDUCED
     Dosage: 200 MG, ORAL
     Route: 048
     Dates: start: 20110416
  2. PLAN B ONE-STEP [Concomitant]
  3. PLAN B ONE-STEP [Suspect]
     Dosage: 1.5 MG: 1.5 MG
     Dates: start: 20110418
  4. PLAN B ONE-STEP [Suspect]
     Dosage: 1.5 MG: 1.5 MG
     Dates: start: 20110418

REACTIONS (4)
  - ABDOMINAL PAIN [None]
  - MALAISE [None]
  - VOMITING [None]
  - HAEMORRHAGE [None]
